FAERS Safety Report 4517878-3 (Version None)
Quarter: 2004Q4

REPORT INFORMATION
  Report Type: 
  Country: None (occurrence: None)
  Receive Date: 20041201
  Receipt Date: 20041201
  Transmission Date: 20050328
  Serious: Yes (Disabling, Other)
  Sender: FDA-Public Use
  Company Number: None

PATIENT
  Sex: Female
  Weight: 75.2971 kg

DRUGS (2)
  1. XANAX [Suspect]
     Indication: ANXIETY
     Dosage: .25 MG TID
  2. XANAX [Suspect]
     Indication: DEPRESSION
     Dosage: .25 MG TID

REACTIONS (2)
  - DYSPNOEA [None]
  - URTICARIA [None]
